FAERS Safety Report 26002582 (Version 1)
Quarter: 2025Q4

REPORT INFORMATION
  Report Type: Spontaneous
  Country: US (occurrence: US)
  Receive Date: 20251106
  Receipt Date: 20251106
  Transmission Date: 20260117
  Serious: No
  Sender: ASTELLAS
  Company Number: US-ASTELLAS-2025-AER-060168

PATIENT
  Age: 75 Year
  Sex: Male

DRUGS (1)
  1. XTANDI [Suspect]
     Active Substance: ENZALUTAMIDE
     Indication: Prostate cancer
     Dosage: 4 CAPSULES DAILY
     Route: 048
     Dates: start: 20250902, end: 20250922

REACTIONS (8)
  - Brain fog [Unknown]
  - Dizziness [Unknown]
  - Arthralgia [Unknown]
  - Pain [Unknown]
  - Dyskinesia [Unknown]
  - Road traffic accident [Unknown]
  - Speech disorder [Unknown]
  - Feeling of despair [Unknown]

NARRATIVE: CASE EVENT DATE: 20250901
